FAERS Safety Report 8300201-6 (Version None)
Quarter: 2012Q2

REPORT INFORMATION
  Report Type: 
  Country: None (occurrence: None)
  Receive Date: 20120420
  Receipt Date: 20120410
  Transmission Date: 20120825
  Serious: Yes (Hospitalization)
  Sender: FDA-Public Use
  Company Number: CA-JNJFOC-20120405112

PATIENT
  Sex: Male
  Weight: 90 kg

DRUGS (8)
  1. FOLIC ACID [Concomitant]
     Route: 065
  2. ASPIRIN [Concomitant]
     Indication: ARTHRITIS
     Route: 065
  3. TYLENOL (CAPLET) [Concomitant]
     Indication: ARTHRITIS
     Route: 065
  4. METHOTREXATE [Concomitant]
     Dosage: 8 TAB
     Route: 048
  5. ACCUPRIL [Concomitant]
     Route: 065
  6. LIPITOR [Concomitant]
     Route: 065
  7. REMICADE [Suspect]
     Indication: RHEUMATOID ARTHRITIS
     Route: 042
     Dates: start: 20010101
  8. ATENOLOL [Concomitant]
     Route: 065

REACTIONS (3)
  - POST PROCEDURAL HAEMORRHAGE [None]
  - CORONARY ARTERIAL STENT INSERTION [None]
  - INGUINAL HERNIA REPAIR [None]
